FAERS Safety Report 9942380 (Version 2)
Quarter: 2014Q2

REPORT INFORMATION
  Report Type: Spontaneous
  Country: US (occurrence: US)
  Receive Date: 20140303
  Receipt Date: 20140505
  Transmission Date: 20141212
  Serious: Yes (Other)
  Sender: FDA-Public Use
  Company Number: US-TEVA-466105USA

PATIENT
  Age: 28 Year
  Sex: Female
  Weight: 59.47 kg

DRUGS (4)
  1. PARAGARD 380A [Suspect]
     Indication: POST COITAL CONTRACEPTION
     Route: 015
     Dates: start: 20131214, end: 201401
  2. MULTIVITAMIN [Concomitant]
  3. ASPIRIN [Concomitant]
  4. BIOTIN [Concomitant]

REACTIONS (4)
  - Ovarian mass [Not Recovered/Not Resolved]
  - Device dislocation [Recovered/Resolved]
  - Vaginal haemorrhage [Recovered/Resolved]
  - Abdominal pain lower [Unknown]
